FAERS Safety Report 23288521 (Version 2)
Quarter: 2023Q4

REPORT INFORMATION
  Report Type: Spontaneous
  Country: JP (occurrence: JP)
  Receive Date: 20231212
  Receipt Date: 20231225
  Transmission Date: 20240109
  Serious: Yes (Death, Other)
  Sender: FDA-Public Use
  Company Number: JP-GENMAB-2023-02337

PATIENT
  Age: 8 Decade
  Sex: Female

DRUGS (4)
  1. EPKINLY [Suspect]
     Active Substance: EPCORITAMAB-BYSP
     Indication: Diffuse large B-cell lymphoma
     Dosage: 0.16 MILLIGRAM, WEEKLY
     Route: 058
     Dates: start: 20231129, end: 20231129
  2. PREDNISOLONE [Concomitant]
     Active Substance: PREDNISOLONE
     Indication: Prophylaxis
     Dosage: 100 MILLIGRAM, WEEKLY
     Route: 048
     Dates: start: 20231129, end: 20231202
  3. ACETAMINOPHEN [Concomitant]
     Active Substance: ACETAMINOPHEN
     Indication: Prophylaxis
     Dosage: 800 MILLIGRAM, WEEKLY
     Route: 048
     Dates: start: 20231129, end: 20231129
  4. FEXOFENADINE HYDROCHLORIDE ALLERGY [Concomitant]
     Indication: Prophylaxis
     Dosage: 50 MILLIGRAM, WEEKLY
     Route: 048
     Dates: start: 20231129, end: 20231129

REACTIONS (1)
  - Diffuse large B-cell lymphoma [Fatal]

NARRATIVE: CASE EVENT DATE: 20231206
